FAERS Safety Report 7580497-9 (Version None)
Quarter: 2011Q2

REPORT INFORMATION
  Report Type: 
  Country: None (occurrence: None)
  Receive Date: 20110629
  Receipt Date: 20110622
  Transmission Date: 20111010
  Serious: Yes (Other)
  Sender: FDA-Public Use
  Company Number: A0932512A

PATIENT
  Sex: Female

DRUGS (2)
  1. CLODRONATE [Concomitant]
     Route: 065
  2. TYKERB [Suspect]
     Dosage: 1250MG PER DAY
     Route: 048
     Dates: start: 20090903, end: 20110531

REACTIONS (2)
  - NEOPLASM MALIGNANT [None]
  - BREAST CANCER RECURRENT [None]
